FAERS Safety Report 6565227-1 (Version None)
Quarter: 2010Q1

REPORT INFORMATION
  Report Type: 
  Country: None (occurrence: None)
  Receive Date: 20100201
  Receipt Date: 20100129
  Transmission Date: 20100710
  Serious: Yes (Death)
  Sender: FDA-Public Use
  Company Number: CN-ROCHE-593917

PATIENT
  Sex: Female
  Weight: 60 kg

DRUGS (5)
  1. TOCILIZUMAB [Suspect]
     Indication: RHEUMATOID ARTHRITIS
     Dosage: ROUTE: IVGTT + FORM: VIAL. LAST DOSE PRIOR TO SAE: 6 OCT 2008, TOTAL MOTHLY DOSE: 432MG
     Route: 042
     Dates: start: 20061102
  2. PLACEBO [Suspect]
     Indication: RHEUMATOID ARTHRITIS
     Dosage: PROVIDED AS: MRA 8 MG/KG + DMARD.
     Route: 042
  3. LEFLUNOMIDE [Concomitant]
     Route: 048
  4. IBUPROFEN [Concomitant]
     Route: 048
  5. FOLIC ACID [Concomitant]
     Route: 048

REACTIONS (1)
  - SUBARACHNOID HAEMORRHAGE [None]
